FAERS Safety Report 9680936 (Version 1)
Quarter: 2013Q4

REPORT INFORMATION
  Report Type: Spontaneous
  Country: US (occurrence: None)
  Receive Date: 20131108
  Receipt Date: 20131108
  Transmission Date: 20140711
  Serious: Yes (Life-Threatening, Hospitalization)
  Sender: FDA-Public Use
  Company Number: None

PATIENT
  Age: 28 Year
  Sex: Female
  Weight: 99.9 kg

DRUGS (10)
  1. WARFARIN [Suspect]
     Indication: DEEP VEIN THROMBOSIS
     Dosage: MONTHS 4MG, QHS/BEDTIME, ORAL
     Route: 048
  2. ABILIFY [Concomitant]
  3. PRISTIQ [Concomitant]
  4. VALIUM [Concomitant]
  5. HYDROXYZINE [Concomitant]
  6. LAMICTAL [Concomitant]
  7. SYNTHROID [Concomitant]
  8. METFORMIN [Concomitant]
  9. PROTONIX [Concomitant]
  10. TOPAMAX [Concomitant]

REACTIONS (1)
  - International normalised ratio increased [None]
